FAERS Safety Report 8545381-2 (Version None)
Quarter: 2012Q3

REPORT INFORMATION
  Report Type: 
  Country: None (occurrence: None)
  Receive Date: 20120719
  Receipt Date: 20120719
  Transmission Date: 20120928
  Serious: Yes (Life-Threatening, Hospitalization)
  Sender: FDA-Public Use
  Company Number: None

PATIENT
  Sex: Male

DRUGS (4)
  1. SINGULIR [Concomitant]
  2. RANITIDINE [Concomitant]
  3. PROPRANOLOL [Suspect]
     Dosage: 1.3 ML FOUR TIMES A DAY PO
     Route: 048
     Dates: start: 20120213, end: 20120718
  4. XOPENEX [Concomitant]

REACTIONS (2)
  - OVERDOSE [None]
  - PRODUCT QUALITY ISSUE [None]
